FAERS Safety Report 5059755-8 (Version None)
Quarter: 2006Q2

REPORT INFORMATION
  Report Type: 
  Country: None (occurrence: None)
  Receive Date: 20060629
  Receipt Date: 20060417
  Transmission Date: 20061013
  Serious: Yes (Hospitalization)
  Sender: FDA-Public Use
  Company Number: PHEH2006US05046

PATIENT
  Age: 70 Year
  Sex: Female

DRUGS (2)
  1. ENABLEX [Suspect]
     Dosage: 15MG/QD
  2. OXYTROL [Suspect]

REACTIONS (1)
  - NAUSEA [None]
